FAERS Safety Report 7116885-4 (Version None)
Quarter: 2010Q4

REPORT INFORMATION
  Report Type: 
  Country: None (occurrence: None)
  Receive Date: 20101122
  Receipt Date: 20101111
  Transmission Date: 20110411
  Serious: No
  Sender: FDA-Public Use
  Company Number: US-B.I. PHARMACEUTICALS,INC./RIDGEFIELD-2010-BP-12737BP

PATIENT

DRUGS (1)
  1. PRADAXA [Suspect]
     Dates: start: 20101101, end: 20101101

REACTIONS (3)
  - ANXIETY [None]
  - HEADACHE [None]
  - RESTLESSNESS [None]
